FAERS Safety Report 12733820 (Version 2)
Quarter: 2016Q3

REPORT INFORMATION
  Report Type: Spontaneous
  Country: FR (occurrence: FR)
  Receive Date: 20160912
  Receipt Date: 20160913
  Transmission Date: 20161109
  Serious: Yes (Hospitalization)
  Sender: FDA-Public Use
  Company Number: FR-ROCHE-1828187

PATIENT
  Age: 75 Year
  Sex: Male

DRUGS (5)
  1. MABTHERA [Suspect]
     Active Substance: RITUXIMAB
     Indication: WALDENSTROM^S MACROGLOBULINAEMIA
     Dosage: CYCLICAL
     Route: 041
     Dates: start: 20160719, end: 20160719
  2. MABTHERA [Suspect]
     Active Substance: RITUXIMAB
     Dosage: CYCLICAL
     Route: 041
     Dates: start: 20160816, end: 20160816
  3. LEVOTHYROX [Concomitant]
     Active Substance: LEVOTHYROXINE
     Indication: HYPOTHYROIDISM
  4. ENDOXAN [Concomitant]
     Active Substance: CYCLOPHOSPHAMIDE
     Indication: WALDENSTROM^S MACROGLOBULINAEMIA
  5. DEXAMETHASONE. [Concomitant]
     Active Substance: DEXAMETHASONE
     Indication: WALDENSTROM^S MACROGLOBULINAEMIA

REACTIONS (3)
  - Tremor [Recovered/Resolved]
  - Off label use [Unknown]
  - Hyperthermia [Recovered/Resolved]

NARRATIVE: CASE EVENT DATE: 20160719
